FAERS Safety Report 6113943-8 (Version None)
Quarter: 2009Q1

REPORT INFORMATION
  Report Type: 
  Country: None (occurrence: None)
  Receive Date: 20090312
  Receipt Date: 20090121
  Transmission Date: 20090719
  Serious: No
  Sender: FDA-Public Use
  Company Number: US-ABBOTT-09P-163-0499154-00

PATIENT
  Age: 16 Year
  Sex: Male

DRUGS (4)
  1. LUPRON DEPOT [Suspect]
     Indication: PRECOCIOUS PUBERTY
     Dosage: LOWEST DOSE
     Dates: start: 20070101, end: 20070101
  2. LUPRON DEPOT [Suspect]
     Dates: start: 20071001
  3. LUPRON DEPOT [Suspect]
     Dates: start: 20080101, end: 20080801
  4. SUPPRELIN IMPLANTS [Concomitant]
     Indication: PRECOCIOUS PUBERTY

REACTIONS (1)
  - DRUG INEFFECTIVE [None]
